FAERS Safety Report 8349493-8 (Version None)
Quarter: 2012Q2

REPORT INFORMATION
  Report Type: 
  Country: None (occurrence: None)
  Receive Date: 20120508
  Receipt Date: 20120508
  Transmission Date: 20120825
  Serious: Yes (Life-Threatening)
  Sender: FDA-Public Use
  Company Number: None

PATIENT
  Age: 57 Year
  Sex: Male
  Weight: 58.2 kg

DRUGS (1)
  1. CLONAZEPAM [Suspect]
     Indication: SCHIZOAFFECTIVE DISORDER
     Dosage: MG BID PO
     Route: 048
     Dates: start: 20110915, end: 20111006

REACTIONS (1)
  - SUICIDE ATTEMPT [None]
